FAERS Safety Report 6986477-6 (Version None)
Quarter: 2010Q3

REPORT INFORMATION
  Report Type: 
  Country: None (occurrence: None)
  Receive Date: 20100915
  Receipt Date: 20090827
  Transmission Date: 20110219
  Serious: No
  Sender: FDA-Public Use
  Company Number: US-WYE-H10112909

PATIENT
  Age: 50 Year
  Sex: Male

DRUGS (7)
  1. PRISTIQ [Suspect]
     Indication: DEPRESSION
     Route: 048
     Dates: start: 20090702
  2. PHENOBARB [Interacting]
     Indication: CONVULSION
     Dosage: 130 MG, FREQUENCY NOT SPECIFIED
  3. TRAZODONE HCL [Concomitant]
  4. SAM-E [Concomitant]
  5. ASPIRIN [Concomitant]
  6. ZOLOFT [Interacting]
     Indication: DEPRESSION
  7. FOLIC ACID [Concomitant]

REACTIONS (4)
  - DRUG INTERACTION [None]
  - PRURITUS [None]
  - RASH ERYTHEMATOUS [None]
  - SOMNOLENCE [None]
